FAERS Safety Report 13919623 (Version 2)
Quarter: 2019Q3

REPORT INFORMATION
  Report Type: Spontaneous
  Country: DE (occurrence: DE)
  Receive Date: 20170830
  Receipt Date: 20190916
  Transmission Date: 20191004
  Serious: Yes (Congenital Anomaly)
  Sender: FDA-Public Use
  Company Number: DE-SUN PHARMACEUTICAL INDUSTRIES LTD-2017RR-148629

PATIENT
  Age: 1 Day
  Sex: Male
  Weight: 3.97 kg

DRUGS (12)
  1. SERTRALINE [Suspect]
     Active Substance: SERTRALINE HYDROCHLORIDE
     Indication: DEPRESSION
     Dosage: 50 MG, DAILY, 0-40.3 GESTATIONAL WEEK
     Route: 064
     Dates: start: 20160414, end: 20170122
  2. INIMUR MYKO [Concomitant]
     Indication: VULVOVAGINAL MYCOTIC INFECTION
     Dosage: 2.2-2.5 GESTATIONAL WEEK
     Route: 064
  3. BEPANTHEN [Concomitant]
     Indication: NASAL DISCOMFORT
     Dosage: 0-11.6 GESTATIONAL WEEK
     Route: 064
  4. LEVETIRACETAM. [Suspect]
     Active Substance: LEVETIRACETAM
     Indication: EPILEPSY
     Dosage: 500 MG, BID; 0-40.3 GESTATIONAL WEEK
     Route: 064
     Dates: start: 20160414, end: 20170122
  5. NYSTATIN. [Concomitant]
     Active Substance: NYSTATIN
     Indication: VULVOVAGINAL MYCOTIC INFECTION
     Dosage: 4-6 GESTATIONAL WEEK
     Route: 064
  6. VITAMIN D NOS [Concomitant]
     Active Substance: VITAMIN D NOS
     Indication: VITAMIN D DEFICIENCY
     Dosage: 1000 IU, DAILY, 8-40 GESTATIONAL WEEK
     Route: 064
  7. EFEROX [Concomitant]
     Active Substance: LEVOTHYROXINE SODIUM
     Indication: HYPOTHYROIDISM
     Dosage: 112 MICROG, DAILY, 0-40.3 GESTATIONAL WEEK
     Route: 064
     Dates: start: 20160414, end: 20170122
  8. BALDRIAN DISPERT [Concomitant]
     Active Substance: VALERIAN
     Indication: SLEEP DISORDER
     Dosage: 45 MG, DAILY, 0-12 GESTATIONAL WEEK
     Route: 064
  9. OXYTOCIN. [Concomitant]
     Active Substance: OXYTOCIN
     Indication: LABOUR INDUCTION
     Dosage: 40.3-40.3 GESTATIONAL WEEK
     Route: 064
     Dates: start: 20170122, end: 20170122
  10. FEMIBION SCHWANGERSCHAFT 1 [Concomitant]
     Indication: PROPHYLAXIS OF NEURAL TUBE DEFECT
     Dosage: 0.8 MG, DAILY, 0-11.6 GESTATIONAL WEEK
     Route: 064
     Dates: start: 20160414, end: 20160706
  11. FOLIC ACID. [Concomitant]
     Active Substance: FOLIC ACID
     Indication: PROPHYLAXIS OF NEURAL TUBE DEFECT
     Dosage: 0.8 MILLIGRAM, DAILY
     Route: 064
     Dates: start: 20160414, end: 20160706
  12. WICK INHALIERSTIFT N [Concomitant]
     Indication: NASOPHARYNGITIS
     Dosage: 8-8 GESTATIONAL WEEK
     Route: 064
     Dates: start: 20160609, end: 20160609

REACTIONS (2)
  - Cerebral haemorrhage neonatal [Unknown]
  - Foetal exposure during pregnancy [Unknown]

NARRATIVE: CASE EVENT DATE: 201604
